FAERS Safety Report 9621351 (Version 1)
Quarter: 2013Q4

REPORT INFORMATION
  Report Type: Spontaneous
  Country: US (occurrence: None)
  Receive Date: 20131011
  Receipt Date: 20131011
  Transmission Date: 20140711
  Serious: Yes (Hospitalization)
  Sender: FDA-Public Use
  Company Number: None

PATIENT
  Age: 69 Year
  Sex: Male
  Weight: 93.4 kg

DRUGS (3)
  1. PEPTO BISMOL [Suspect]
  2. CARBOPLATIN [Suspect]
     Dates: end: 20131008
  3. PACLITAXEL [Suspect]
     Dates: end: 20131008

REACTIONS (4)
  - Faeces discoloured [None]
  - Rectal haemorrhage [None]
  - Diarrhoea [None]
  - Occult blood positive [None]
